FAERS Safety Report 7669651-5 (Version None)
Quarter: 2011Q3

REPORT INFORMATION
  Report Type: 
  Country: None (occurrence: None)
  Receive Date: 20110802
  Receipt Date: 20110719
  Transmission Date: 20111222
  Serious: Yes (Other)
  Sender: FDA-Public Use
  Company Number: 2011MA009078

PATIENT
  Age: 42 Year
  Sex: Female
  Weight: 46 kg

DRUGS (2)
  1. ACETAMINOPHEN [Suspect]
     Indication: HEADACHE
     Dosage: 2000 MG, QD, PO
     Route: 048
  2. IBUPROFEN [Suspect]
     Indication: HEADACHE
     Dosage: 1600 MG, QD, PO
     Route: 048

REACTIONS (7)
  - PANIC REACTION [None]
  - DEPRESSION [None]
  - DRUG ABUSE [None]
  - RADIATION MUCOSITIS [None]
  - DRUG DEPENDENCE [None]
  - DRUG ADMINISTRATION ERROR [None]
  - MIGRAINE [None]
